FAERS Safety Report 15560228 (Version 1)
Quarter: 2018Q4

REPORT INFORMATION
  Report Type: Report from Study
  Country: None (occurrence: US)
  Receive Date: 20181029
  Receipt Date: 20181029
  Transmission Date: 20190205
  Serious: Yes (Hospitalization, Other)
  Sender: FDA-Public Use
  Company Number: US-ABBVIE-18K-163-2426324-00

PATIENT
  Age: 17 Year
  Sex: Male

DRUGS (3)
  1. HUMIRA [Suspect]
     Active Substance: ADALIMUMAB
     Dosage: DAY 29
     Route: 058
     Dates: start: 20180811, end: 20181007
  2. HUMIRA [Suspect]
     Active Substance: ADALIMUMAB
     Indication: CROHN^S DISEASE
     Dosage: DAY 1
     Route: 058
     Dates: start: 20180714, end: 20180714
  3. HUMIRA [Suspect]
     Active Substance: ADALIMUMAB
     Dosage: DAY 15
     Route: 058
     Dates: start: 20180728, end: 20180728

REACTIONS (11)
  - Infected fistula [Recovered/Resolved]
  - Sepsis [Unknown]
  - Fistula [Not Recovered/Not Resolved]
  - Weight decreased [Unknown]
  - Muscle abscess [Unknown]
  - Groin abscess [Recovered/Resolved]
  - Peripheral swelling [Recovered/Resolved]
  - Sepsis [Unknown]
  - Splenic infection [Recovered/Resolved]
  - Abscess intestinal [Unknown]
  - Abdominal pain [Recovered/Resolved]

NARRATIVE: CASE EVENT DATE: 2018
